FAERS Safety Report 22812204 (Version 2)
Quarter: 2023Q4

REPORT INFORMATION
  Report Type: Report from Study
  Country: ES (occurrence: ES)
  Receive Date: 20230811
  Receipt Date: 20231031
  Transmission Date: 20240109
  Serious: Yes (Hospitalization, Other)
  Sender: FDA-Public Use
  Company Number: ES-CELLTRION INC.-2023ES015849

PATIENT

DRUGS (16)
  1. TRASTUZUMAB [Suspect]
     Active Substance: TRASTUZUMAB
     Indication: HER2 positive breast cancer
     Dosage: 6 MG/KG (MAINTENANCE DOSE LAST DOSE PRIOR TO SAE ON 13/AUG/2014)
     Route: 042
  2. TRASTUZUMAB [Suspect]
     Active Substance: TRASTUZUMAB
     Dosage: 8 MG/KG (LOADING DOSE)
     Route: 042
     Dates: start: 20130823, end: 20130823
  3. TRASTUZUMAB [Suspect]
     Active Substance: TRASTUZUMAB
     Dosage: 348 MG(DATE OF LAST DOSE PRIOR TO ADVERSE EVENT/ SPECIAL SITUATION 13/AUG/2014)
     Route: 042
     Dates: start: 20130823
  4. TRASTUZUMAB [Suspect]
     Active Substance: TRASTUZUMAB
     Indication: HER2 positive breast cancer
     Dosage: 8 MG/KG (LOADING DOSE)
     Route: 042
     Dates: start: 20130823, end: 20130823
  5. TRASTUZUMAB [Suspect]
     Active Substance: TRASTUZUMAB
     Dosage: 348 MG (DATE OF LAST DOSE PRIOR TO ADVERSE EVENT/ SPECIAL SITUATION 13/AUG/2014)
     Route: 042
     Dates: start: 20130823
  6. TRASTUZUMAB [Suspect]
     Active Substance: TRASTUZUMAB
     Dosage: 6 MG/KG EVERY 3 WEEKS (MAINTENANCE DOSE LAST DOSE PRIOR TO SAE ON 13/AUG/2014)
     Route: 042
  7. LORAZEPAM [Suspect]
     Active Substance: LORAZEPAM
     Dosage: 1 MG
     Dates: start: 1993, end: 201507
  8. FUROSEMIDE [Suspect]
     Active Substance: FUROSEMIDE
     Dosage: 40 MG
  9. SERTRALINE HYDROCHLORIDE [Suspect]
     Active Substance: SERTRALINE HYDROCHLORIDE
     Dosage: 25 MG
  10. SERTRALINE HYDROCHLORIDE [Suspect]
     Active Substance: SERTRALINE HYDROCHLORIDE
     Dosage: 50 UNK
     Dates: start: 20130809
  11. BUDESONIDE [Suspect]
     Active Substance: BUDESONIDE
  12. TELMISARTAN [Suspect]
     Active Substance: TELMISARTAN
     Dosage: 40 MG
     Dates: start: 201304
  13. BISOPROLOL [Suspect]
     Active Substance: BISOPROLOL\BISOPROLOL FUMARATE
     Dosage: 2 MG
  14. BISOPROLOL [Suspect]
     Active Substance: BISOPROLOL\BISOPROLOL FUMARATE
     Dosage: 5 MG
  15. FORMOTEROL [Suspect]
     Active Substance: FORMOTEROL
  16. ROSUVASTATIN [Suspect]
     Active Substance: ROSUVASTATIN
     Dosage: 5 MG

REACTIONS (7)
  - Angina unstable [Recovered/Resolved]
  - Mitral valve incompetence [Recovered/Resolved]
  - Aortic valve replacement [Recovered/Resolved]
  - Annuloplasty [Recovered/Resolved]
  - Mitral valve replacement [Recovered/Resolved]
  - Cardiac failure [Recovered/Resolved]
  - Overdose [Unknown]

NARRATIVE: CASE EVENT DATE: 20150224
